FAERS Safety Report 16830890 (Version 1)
Quarter: 2019Q3

REPORT INFORMATION
  Report Type: Spontaneous
  Country: US (occurrence: US)
  Receive Date: 20190920
  Receipt Date: 20190920
  Transmission Date: 20191005
  Serious: No
  Sender: FDA-Public Use
  Company Number: US-ASTRAZENECA-2019SF20552

PATIENT
  Age: 25899 Day
  Sex: Male
  Weight: 83.9 kg

DRUGS (12)
  1. BYDUREON [Suspect]
     Active Substance: EXENATIDE
     Indication: BLOOD GLUCOSE ABNORMAL
     Route: 058
     Dates: start: 20190605
  2. BYDUREON BCISE [Suspect]
     Active Substance: EXENATIDE
     Route: 058
  3. POTASSIUM [Concomitant]
     Active Substance: POTASSIUM
  4. GLIMIPERIDE [Concomitant]
     Active Substance: GLIMEPIRIDE
  5. ACTOS [Concomitant]
     Active Substance: PIOGLITAZONE HYDROCHLORIDE
  6. METFORMIN [Concomitant]
     Active Substance: METFORMIN HYDROCHLORIDE
  7. LANTUS [Concomitant]
     Active Substance: INSULIN GLARGINE
     Dosage: 12USP UNITS EVERY DAY
  8. ASPIRIN. [Concomitant]
     Active Substance: ASPIRIN
  9. LISINOPRIL. [Suspect]
     Active Substance: LISINOPRIL
     Dosage: 40.0MG UNKNOWN
     Route: 048
  10. ZOCOR [Concomitant]
     Active Substance: SIMVASTATIN
  11. TRAJENTA [Concomitant]
     Active Substance: LINAGLIPTIN
  12. VITAMIN D [Concomitant]
     Active Substance: VITAMIN D NOS

REACTIONS (3)
  - Injection site pain [Recovered/Resolved]
  - Device issue [Unknown]
  - Injection site haemorrhage [Recovered/Resolved]

NARRATIVE: CASE EVENT DATE: 20190821
